FAERS Safety Report 5226408-2 (Version None)
Quarter: 2006Q4

REPORT INFORMATION
  Report Type: 
  Country: None (occurrence: None)
  Receive Date: 20061201
  Receipt Date: 20060927
  Transmission Date: 20070319
  Serious: No
  Sender: FDA-Public Use
  Company Number: US200609007017

PATIENT
  Age: 91 Year
  Sex: Female

DRUGS (5)
  1. CYMBALTA [Suspect]
     Indication: DEPRESSION
     Dosage: 20 MG, UNK, UNK
     Dates: start: 20060801
  2. ENALAPRIL MALEATE [Concomitant]
  3. NORVASC [Concomitant]
  4. GABAPENTIN [Concomitant]
  5. SYNTHROID [Concomitant]

REACTIONS (5)
  - APATHY [None]
  - DEPRESSION [None]
  - DRUG INEFFECTIVE [None]
  - SOMNOLENCE [None]
  - VISION BLURRED [None]
